FAERS Safety Report 17882014 (Version 1)
Quarter: 2020Q2

REPORT INFORMATION
  Report Type: Spontaneous
  Country: US (occurrence: US)
  Receive Date: 20200610
  Receipt Date: 20200610
  Transmission Date: 20200714
  Serious: No
  Sender: FDA-Public Use
  Company Number: US-SEPTODONT-201905429

PATIENT
  Sex: Male

DRUGS (2)
  1. LIDOCAINE CARTRIDGE 2% WITH EPINEPHRINE (EPINEPHRINE BITARTRATE\LIDOCAINE HYDROCHLORIDE) [Suspect]
     Active Substance: EPINEPHRINE BITARTRATE\LIDOCAINE HYDROCHLORIDE
     Indication: DENTAL LOCAL ANAESTHESIA
     Dosage: MORE THAN THE USUAL DOSE (MULTIPLE CARPULES, UP TO 4)
     Route: 004
     Dates: start: 20190730, end: 20190730
  2. SEPTOCAINE [Suspect]
     Active Substance: ARTICAINE HYDROCHLORIDE\EPINEPHRINE BITARTRATE
     Indication: DENTAL LOCAL ANAESTHESIA
     Dosage: MORE THAN THE USUAL DOSE (MULTIPLE CARPULES, UP TO 4)
     Route: 004
     Dates: start: 20190730, end: 20190730

REACTIONS (3)
  - Discomfort [Recovered/Resolved]
  - Drug ineffective [Unknown]
  - Breakthrough pain [Recovered/Resolved]

NARRATIVE: CASE EVENT DATE: 20190730
